FAERS Safety Report 20227032 (Version 2)
Quarter: 2024Q1

REPORT INFORMATION
  Report Type: Spontaneous
  Country: US (occurrence: US)
  Receive Date: 20211224
  Receipt Date: 20240125
  Transmission Date: 20240410
  Serious: Yes (Other)
  Sender: FDA-Public Use
  Company Number: US-JNJFOC-20211240360

PATIENT
  Age: 6 Decade
  Sex: Male

DRUGS (1)
  1. ELMIRON [Suspect]
     Active Substance: PENTOSAN POLYSULFATE SODIUM
     Indication: Cystitis interstitial
     Dosage: 300 DAILY
     Route: 048
     Dates: start: 2016, end: 202006

REACTIONS (2)
  - Pigmentary maculopathy [Unknown]
  - Chorioretinal scar [Unknown]

NARRATIVE: CASE EVENT DATE: 20200101
